FAERS Safety Report 17183406 (Version 4)
Quarter: 2020Q1

REPORT INFORMATION
  Report Type: Report from Study
  Country: BR (occurrence: BR)
  Receive Date: 20191220
  Receipt Date: 20200319
  Transmission Date: 20200409
  Serious: Yes (Hospitalization)
  Sender: FDA-Public Use
  Company Number: NVSC2019BR048333

PATIENT
  Age: 47 Year
  Sex: Male
  Weight: 88 kg

DRUGS (5)
  1. TRAMETINIB COMP-TRAM+ [Suspect]
     Active Substance: TRAMETINIB
     Indication: METASTATIC MALIGNANT MELANOMA
     Dosage: 1 MG, QD
     Route: 048
     Dates: start: 20180628
  2. DIPYRONE [Concomitant]
     Active Substance: DIPYRONE
     Indication: HEADACHE
     Dosage: 40 UNK, PRN
     Route: 048
     Dates: start: 20191111, end: 20191114
  3. DABRAFENIB [Suspect]
     Active Substance: DABRAFENIB
     Indication: METASTATIC MALIGNANT MELANOMA
     Dosage: UNK
     Route: 042
     Dates: start: 20180628
  4. DABRAFENIB [Suspect]
     Active Substance: DABRAFENIB
     Indication: METASTATIC MALIGNANT MELANOMA
     Dosage: 100 MG, BID
     Route: 048
     Dates: start: 20180628
  5. DABRAFENIB [Suspect]
     Active Substance: DABRAFENIB
     Route: 048
     Dates: start: 20180628

REACTIONS (2)
  - Paraesthesia [Recovered/Resolved]
  - Diplopia [Recovered/Resolved]

NARRATIVE: CASE EVENT DATE: 20191122
